FAERS Safety Report 7325144-6 (Version None)
Quarter: 2011Q1

REPORT INFORMATION
  Report Type: 
  Country: None (occurrence: None)
  Receive Date: 20110302
  Receipt Date: 20110225
  Transmission Date: 20110831
  Serious: Yes (Death)
  Sender: FDA-Public Use
  Company Number: NL-ELI_LILLY_AND_COMPANY-NL201102007515

PATIENT
  Sex: Female

DRUGS (6)
  1. CLOZAPINE [Concomitant]
     Dosage: 10 MG, UNKNOWN
     Route: 065
  2. PROPRANOLOL [Concomitant]
     Dosage: 10 MG, UNKNOWN
     Route: 065
  3. CALCIUM CARBONATE W/COLECALCIFEROL [Concomitant]
     Dosage: 1.25 G/440IE, UNKNOWN
     Route: 065
  4. OXYCODON [Concomitant]
     Dosage: 10 MG, UNKNOWN
     Route: 065
  5. FORTEO [Suspect]
     Indication: OSTEOPOROSIS
     Dosage: 20 UG, DAILY (1/D)
     Route: 058
     Dates: start: 20091204
  6. OMEPRAZOLE [Concomitant]
     Dosage: 20 MG, UNKNOWN
     Route: 065

REACTIONS (1)
  - DEATH [None]
